FAERS Safety Report 7908441-2 (Version None)
Quarter: 2011Q4

REPORT INFORMATION
  Report Type: 
  Country: None (occurrence: None)
  Receive Date: 20111111
  Receipt Date: 20111101
  Transmission Date: 20120403
  Serious: Yes (Hospitalization)
  Sender: FDA-Public Use
  Company Number: US-JNJFOC-20110607700

PATIENT
  Sex: Female
  Weight: 86.18 kg

DRUGS (5)
  1. AN UNKNOWN MEDICATION [Concomitant]
     Indication: RHEUMATOID ARTHRITIS
     Dates: start: 20071201
  2. REMICADE [Suspect]
     Route: 042
     Dates: start: 20100824, end: 20110201
  3. REMICADE [Suspect]
     Indication: RHEUMATOID ARTHRITIS
     Route: 042
     Dates: end: 20110510
  4. METHOTREXATE [Concomitant]
     Indication: RHEUMATOID ARTHRITIS
     Dates: start: 20071201
  5. PREDNISONE TAB [Concomitant]
     Indication: RHEUMATOID ARTHRITIS
     Dates: start: 20071201

REACTIONS (7)
  - RESPIRATORY TRACT INFECTION FUNGAL [None]
  - MALAISE [None]
  - BRONCHITIS CHRONIC [None]
  - DECREASED APPETITE [None]
  - PULMONARY MASS [None]
  - HEADACHE [None]
  - FEELING ABNORMAL [None]
